FAERS Safety Report 7768724-6 (Version None)
Quarter: 2011Q3

REPORT INFORMATION
  Report Type: 
  Country: None (occurrence: None)
  Receive Date: 20110922
  Receipt Date: 20101012
  Transmission Date: 20111222
  Serious: No
  Sender: FDA-Public Use
  Company Number: US-ASTRAZENECA-2010SE48212

PATIENT
  Age: 47 Year
  Sex: Female

DRUGS (8)
  1. SEROQUEL [Suspect]
     Route: 048
     Dates: start: 20040101
  2. LITHIUM CARBONATE [Concomitant]
  3. LORAZEPAM [Concomitant]
  4. SEROQUEL [Suspect]
     Indication: BIPOLAR DISORDER
     Route: 048
     Dates: start: 20040101
  5. SEROQUEL [Suspect]
     Route: 048
     Dates: start: 20040101
  6. VYTORIN [Concomitant]
  7. LEVOTHYROXINE SODIUM [Concomitant]
     Indication: THYROID DISORDER
  8. SEROQUEL [Suspect]
     Indication: SCHIZOAFFECTIVE DISORDER
     Route: 048
     Dates: start: 20040101

REACTIONS (4)
  - BLOOD TRIGLYCERIDES INCREASED [None]
  - THERAPEUTIC RESPONSE UNEXPECTED [None]
  - INCREASED APPETITE [None]
  - OVERWEIGHT [None]
